FAERS Safety Report 7170174-0 (Version None)
Quarter: 2010Q4

REPORT INFORMATION
  Report Type: 
  Country: None (occurrence: None)
  Receive Date: 20101217
  Receipt Date: 20101208
  Transmission Date: 20110411
  Serious: Yes (Hospitalization)
  Sender: FDA-Public Use
  Company Number: US-ROCHE-739396

PATIENT
  Sex: Male
  Weight: 67.1 kg

DRUGS (2)
  1. AVASTIN [Suspect]
     Route: 042
     Dates: start: 20091108, end: 20101027
  2. ALIMTA [Suspect]
     Route: 065

REACTIONS (2)
  - INFECTION [None]
  - RENAL FAILURE ACUTE [None]
